FAERS Safety Report 9256887 (Version 2)
Quarter: 2013Q3

REPORT INFORMATION
  Report Type: Spontaneous
  Country: US (occurrence: None)
  Receive Date: 20130423
  Receipt Date: 20130826
  Transmission Date: 20140515
  Serious: Yes (Other)
  Sender: FDA-Public Use
  Company Number: 2013SA038822

PATIENT
  Age: 31 Year
  Sex: Female

DRUGS (2)
  1. CAPSAICIN [Suspect]
     Indication: BACK PAIN
     Dates: start: 20130410, end: 20130410
  2. CAPSAICIN [Suspect]
     Indication: NECK PAIN
     Dates: start: 20130410, end: 20130410

REACTIONS (2)
  - Chemical burn of skin [None]
  - Insomnia [None]
